FAERS Safety Report 6069082-8 (Version None)
Quarter: 2009Q1

REPORT INFORMATION
  Report Type: 
  Country: None (occurrence: None)
  Receive Date: 20090206
  Receipt Date: 20090123
  Transmission Date: 20090719
  Serious: Yes (Other)
  Sender: FDA-Public Use
  Company Number: US-ELI_LILLY_AND_COMPANY-US200901004413

PATIENT
  Sex: Female

DRUGS (12)
  1. FORTEO [Suspect]
     Indication: FEMUR FRACTURE
     Dosage: UNK, UNK
     Dates: start: 20080201
  2. ACTONEL [Concomitant]
  3. FLUOXETINE                              /N/A/ [Concomitant]
     Dosage: 20 MG, DAILY (1/D)
  4. AMIODARONE [Concomitant]
     Dosage: 100 MG, DAILY (1/D)
  5. ATENOLOL [Concomitant]
     Dosage: 50 MG, DAILY (1/D)
  6. ASPIRIN [Concomitant]
     Dosage: 81 MG, DAILY (1/D)
  7. ASCORBIC ACID [Concomitant]
  8. VITAMIN E /001105/ [Concomitant]
  9. CALCIUM W/VITAMIN D NOS [Concomitant]
     Dosage: 1000 MG, DAILY (1/D)
  10. VICODIN [Concomitant]
     Dosage: UNK, AS NEEDED
  11. VITAMINS NOS [Concomitant]
  12. GLUCOSAMINE W/CHONDROITIN [Concomitant]

REACTIONS (12)
  - ANXIETY [None]
  - ARTHRALGIA [None]
  - BONE DENSITY DECREASED [None]
  - BONE DISORDER [None]
  - DIZZINESS [None]
  - FRACTURE DELAYED UNION [None]
  - IMPAIRED HEALING [None]
  - MEMORY IMPAIRMENT [None]
  - MUSCULOSKELETAL PAIN [None]
  - OSTEOPENIA [None]
  - PAIN [None]
  - PAIN IN EXTREMITY [None]
